FAERS Safety Report 13160040 (Version 1)
Quarter: 2017Q1

REPORT INFORMATION
  Report Type: Spontaneous
  Country: US (occurrence: US)
  Receive Date: 20170127
  Receipt Date: 20170127
  Transmission Date: 20170428
  Serious: No
  Sender: FDA-Public Use
  Company Number: US-PFIZER INC-2017031388

PATIENT
  Age: 43 Year
  Weight: 82 kg

DRUGS (1)
  1. ADVIL COLD AND SINUS [Suspect]
     Active Substance: IBUPROFEN\PSEUDOEPHEDRINE HYDROCHLORIDE
     Indication: NASOPHARYNGITIS
     Dosage: UNK
     Dates: start: 201701, end: 20170119

REACTIONS (1)
  - Drug screen positive [Unknown]

NARRATIVE: CASE EVENT DATE: 20170119
